FAERS Safety Report 18498321 (Version 2)
Quarter: 2020Q4

REPORT INFORMATION
  Report Type: Spontaneous
  Country: US (occurrence: US)
  Receive Date: 20201112
  Receipt Date: 20201215
  Transmission Date: 20210114
  Serious: Yes (Life-Threatening, Hospitalization)
  Sender: FDA-Public Use
  Company Number: US-TEVA-2020-US-1846401

PATIENT
  Age: 44 Year
  Sex: Female

DRUGS (6)
  1. EVEROLIMUS. [Suspect]
     Active Substance: EVEROLIMUS
     Indication: METASTASES TO LUNG
  2. IPILIMUMAB [Concomitant]
     Active Substance: IPILIMUMAB
     Indication: METASTASES TO LUNG
  3. NIVOLUMAB [Concomitant]
     Active Substance: NIVOLUMAB
     Indication: RENAL CELL CARCINOMA
     Route: 065
  4. EVEROLIMUS. [Suspect]
     Active Substance: EVEROLIMUS
     Indication: RENAL CELL CARCINOMA
     Route: 065
  5. IPILIMUMAB [Concomitant]
     Active Substance: IPILIMUMAB
     Indication: RENAL CELL CARCINOMA
     Route: 065
  6. NIVOLUMAB [Concomitant]
     Active Substance: NIVOLUMAB
     Indication: METASTASES TO LUNG

REACTIONS (5)
  - Alveolar proteinosis [Unknown]
  - Vomiting [Unknown]
  - Pleural effusion [Unknown]
  - Respiratory disorder [Unknown]
  - Lactic acidosis [Unknown]
